FAERS Safety Report 5136655-6 (Version None)
Quarter: 2006Q4

REPORT INFORMATION
  Report Type: 
  Country: None (occurrence: None)
  Receive Date: 20061023
  Receipt Date: 20061010
  Transmission Date: 20070319
  Serious: Yes (Other)
  Sender: FDA-Public Use
  Company Number: 2006126683

PATIENT

DRUGS (2)
  1. CHANTIX [Suspect]
  2. COUMADIN [Concomitant]

REACTIONS (1)
  - DRUG LEVEL INCREASED [None]
